FAERS Safety Report 5851922-6 (Version None)
Quarter: 2008Q3

REPORT INFORMATION
  Report Type: 
  Country: None (occurrence: None)
  Receive Date: 20080819
  Receipt Date: 20080806
  Transmission Date: 20090109
  Serious: No
  Sender: FDA-Public Use
  Company Number: 2008-181835-NL

PATIENT
  Age: 46 Year
  Sex: Female

DRUGS (1)
  1. ETONOGESTREL [Suspect]
     Indication: CONTRACEPTION
     Dosage: DF; SUBCUTANEOUS
     Route: 058
     Dates: start: 20070528

REACTIONS (2)
  - UTERINE CYST [None]
  - UTERINE LEIOMYOMA [None]
